FAERS Safety Report 13734507 (Version 2)
Quarter: 2017Q3

REPORT INFORMATION
  Report Type: Spontaneous
  Country: DE (occurrence: DE)
  Receive Date: 20170709
  Receipt Date: 20170801
  Transmission Date: 20171127
  Serious: Yes (Life-Threatening, Hospitalization, Other)
  Sender: FDA-Public Use
  Company Number: DE-009507513-1706DEU008834

PATIENT
  Sex: Male

DRUGS (1)
  1. VELMETIA [Suspect]
     Active Substance: METFORMIN\SITAGLIPTIN
     Dosage: UNK

REACTIONS (4)
  - Epistaxis [Unknown]
  - Thrombocytopenia [Unknown]
  - Eye haemorrhage [Unknown]
  - Petechiae [Unknown]
